FAERS Safety Report 18706248 (Version 1)
Quarter: 2021Q1

REPORT INFORMATION
  Report Type: Spontaneous
  Country: US (occurrence: US)
  Receive Date: 20210105
  Receipt Date: 20210105
  Transmission Date: 20210419
  Serious: Yes (Life-Threatening, Hospitalization)
  Sender: FDA-Public Use
  Company Number: None

PATIENT
  Age: 63 Year
  Sex: Male
  Weight: 105 kg

DRUGS (1)
  1. LISINOPRIL (LISINOPRIL 40MG TAB) [Suspect]
     Active Substance: LISINOPRIL
     Indication: HYPERTENSION
     Route: 048
     Dates: start: 20140219, end: 20201001

REACTIONS (5)
  - Angioedema [None]
  - Blood gases [None]
  - Respiratory failure [None]
  - Obstructive airways disorder [None]
  - Therapy interrupted [None]

NARRATIVE: CASE EVENT DATE: 20201001
